FAERS Safety Report 6581669-2 (Version None)
Quarter: 2010Q1

REPORT INFORMATION
  Report Type: 
  Country: None (occurrence: None)
  Receive Date: 20100215
  Receipt Date: 20100131
  Transmission Date: 20100710
  Serious: Yes (Hospitalization, Other)
  Sender: FDA-Public Use
  Company Number: DE-ASTRAZENECA-2010SE04191

PATIENT
  Age: 29974 Day
  Sex: Female
  Weight: 86 kg

DRUGS (3)
  1. ARIMIDEX [Suspect]
     Indication: BREAST CANCER
     Route: 048
     Dates: start: 20080623
  2. FUROSEMID [Concomitant]
     Indication: HYPERTENSION
     Route: 048
     Dates: start: 20080707
  3. BISOHEXAL 5 [Concomitant]
     Indication: HYPERTENSION
     Route: 048
     Dates: start: 20080102

REACTIONS (2)
  - CEREBRAL ISCHAEMIA [None]
  - CEREBROVASCULAR ACCIDENT [None]
